FAERS Safety Report 13817657 (Version 2)
Quarter: 2017Q3

REPORT INFORMATION
  Report Type: Report from Study
  Country: FR (occurrence: FR)
  Receive Date: 20170731
  Receipt Date: 20170928
  Transmission Date: 20171127
  Serious: Yes (Other)
  Sender: FDA-Public Use
  Company Number: PHHY2017FR110118

PATIENT
  Age: 15 Year
  Sex: Male

DRUGS (1)
  1. OMNITROPE [Suspect]
     Active Substance: SOMATROPIN
     Indication: PRODUCT USED FOR UNKNOWN INDICATION
     Dosage: 2 MG, QD (SIX DAYS ON SEVEN)
     Route: 065
     Dates: start: 20170719

REACTIONS (7)
  - Lip swelling [Unknown]
  - Drug hypersensitivity [Unknown]
  - Hot flush [Unknown]
  - Product contamination with body fluid [Unknown]
  - Feeling abnormal [Unknown]
  - Chest discomfort [Unknown]
  - Erythema [Unknown]

NARRATIVE: CASE EVENT DATE: 20170721
